FAERS Safety Report 8947443 (Version 1)
Quarter: 2012Q4

REPORT INFORMATION
  Report Type: 
  Country: US (occurrence: US)
  Receive Date: 20121204
  Receipt Date: 20121204
  Transmission Date: 20130627
  Serious: Yes (Death)
  Sender: FDA-Public Use
  Company Number: US-ACTELION-A-US2012-75058

PATIENT
  Age: 55 Year
  Sex: Female

DRUGS (3)
  1. VELETRI [Suspect]
     Indication: PULMONARY ARTERIAL HYPERTENSION
     Dosage: 28 ng/kg, per min
     Route: 042
     Dates: start: 20120224
  2. LETAIRIS [Concomitant]
  3. ADCIRCA [Concomitant]

REACTIONS (1)
  - Death [Fatal]
